FAERS Safety Report 8789392 (Version 1)
Quarter: 2012Q4

REPORT INFORMATION
  Report Type: Spontaneous
  Country: US (occurrence: None)
  Receive Date: 20120910
  Receipt Date: 20120910
  Transmission Date: 20130627
  Serious: Yes (Hospitalization)
  Sender: FDA-Public Use
  Company Number: None

PATIENT
  Sex: Female
  Weight: 85 kg

DRUGS (1)
  1. PACLITAXEL (TAXOL) [Suspect]

REACTIONS (9)
  - Dysphagia [None]
  - Neck pain [None]
  - Dyspnoea [None]
  - Pneumomediastinum [None]
  - Headache [None]
  - Visual field defect [None]
  - Metastases to lung [None]
  - Metastases to lymph nodes [None]
  - Mediastinal mass [None]
